FAERS Safety Report 9358703 (Version 6)
Quarter: 2013Q4

REPORT INFORMATION
  Report Type: Report from Study
  Country: JP (occurrence: JP)
  Receive Date: 20130620
  Receipt Date: 20131126
  Transmission Date: 20140711
  Serious: Yes (Disabling)
  Sender: FDA-Public Use
  Company Number: JP-GLAXOSMITHKLINE-B0900585A

PATIENT
  Age: 61 Year
  Sex: Male
  Weight: 48 kg

DRUGS (5)
  1. VOTRIENT 200MG [Suspect]
     Indication: ANGIOSARCOMA
     Dosage: 400MG PER DAY
     Route: 048
     Dates: start: 20130524, end: 20130614
  2. WARFARIN [Suspect]
     Indication: CARDIAC OPERATION
     Route: 048
  3. VASOLAN [Concomitant]
     Indication: CARDIAC OPERATION
     Route: 065
  4. ARTIST [Concomitant]
     Indication: HYPERTENSION
     Route: 048
  5. TAMBOCOR [Concomitant]
     Indication: ARRHYTHMIA
     Route: 065

REACTIONS (1)
  - Cerebral haemorrhage [Recovered/Resolved with Sequelae]
